FAERS Safety Report 6962872-6 (Version None)
Quarter: 2010Q3

REPORT INFORMATION
  Report Type: 
  Country: None (occurrence: None)
  Receive Date: 20100902
  Receipt Date: 20100825
  Transmission Date: 20110219
  Serious: Yes (Other)
  Sender: FDA-Public Use
  Company Number: US-PFIZER INC-2010107613

PATIENT
  Sex: Female

DRUGS (2)
  1. NORVASC [Suspect]
     Dosage: 5 MG, UNK
  2. NORVASC [Suspect]
     Dosage: 10 MG, UNK

REACTIONS (1)
  - OEDEMA PERIPHERAL [None]
